FAERS Safety Report 23075551 (Version 1)
Quarter: 2023Q4

REPORT INFORMATION
  Report Type: Spontaneous
  Country: US (occurrence: US)
  Receive Date: 20231017
  Receipt Date: 20231017
  Transmission Date: 20240109
  Serious: Yes (Hospitalization, Other)
  Sender: FDA-Public Use
  Company Number: US-AMGEN-USASP2023181350

PATIENT
  Age: 42 Year
  Sex: Female

DRUGS (1)
  1. RITUXIMAB [Suspect]
     Active Substance: RITUXIMAB
     Indication: Rheumatoid arthritis
     Dosage: UNK
     Route: 065

REACTIONS (10)
  - Rheumatoid arthritis [Unknown]
  - Abdominal abscess [Unknown]
  - Enterovesical fistula [Unknown]
  - Encephalopathy [Unknown]
  - Klebsiella urinary tract infection [Unknown]
  - Sepsis [Unknown]
  - Immunodeficiency [Unknown]
  - Hyperammonaemia [Recovered/Resolved]
  - Catabolic state [Unknown]
  - Off label use [Unknown]
